FAERS Safety Report 21227705 (Version 1)
Quarter: 2022Q3

REPORT INFORMATION
  Report Type: Spontaneous
  Country: US (occurrence: None)
  Receive Date: 20220817
  Receipt Date: 20220817
  Transmission Date: 20221027
  Serious: Yes (Hospitalization)
  Sender: FDA-Public Use
  Company Number: None

PATIENT
  Age: 59 Year
  Sex: Female

DRUGS (3)
  1. AVONEX [Suspect]
     Active Substance: INTERFERON BETA-1A
     Indication: Multiple sclerosis
     Dosage: 30 MCG/0.5ML ??INJECT 1 PEN IN THE MUSCLE EVERY 7 DAYS
     Route: 030
     Dates: start: 20190529
  2. AVONEX [Suspect]
     Active Substance: INTERFERON BETA-1A
     Dosage: OTHER QUANTITY : 1 PEN;?FREQUENCY : WEEKLY;?
     Route: 030
  3. ADVAIR DISKU AER [Concomitant]

REACTIONS (2)
  - Fall [None]
  - Swelling [None]

NARRATIVE: CASE EVENT DATE: 20220816
